FAERS Safety Report 24091858 (Version 1)
Quarter: 2024Q3

REPORT INFORMATION
  Report Type: Spontaneous
  Country: US (occurrence: US)
  Receive Date: 20240715
  Receipt Date: 20240715
  Transmission Date: 20241017
  Serious: No
  Sender: PERRIGO
  Company Number: US-PERRIGO-24US000712

PATIENT
  Age: 79 Year
  Sex: Male
  Weight: 86.168 kg

DRUGS (1)
  1. MINOXIDIL [Suspect]
     Active Substance: MINOXIDIL
     Indication: Alopecia
     Dosage: 1 ML, BID
     Route: 061
     Dates: start: 20240101, end: 20240106

REACTIONS (11)
  - Application site rash [Recovered/Resolved]
  - Erythema [Recovered/Resolved]
  - Feeling hot [Recovered/Resolved]
  - Periorbital swelling [Recovered/Resolved]
  - Swelling face [Recovered/Resolved]
  - Infection [Recovered/Resolved]
  - Skin exfoliation [Recovering/Resolving]
  - Application site scab [Recovering/Resolving]
  - Dandruff [Recovering/Resolving]
  - Application site pain [Recovered/Resolved]
  - Application site pruritus [Recovering/Resolving]

NARRATIVE: CASE EVENT DATE: 20240106
